FAERS Safety Report 9994599 (Version 1)
Quarter: 2014Q1

REPORT INFORMATION
  Report Type: Spontaneous
  Country: US (occurrence: US)
  Receive Date: 20140311
  Receipt Date: 20140311
  Transmission Date: 20141002
  Serious: Yes (Other)
  Sender: FDA-Public Use
  Company Number: US-BRISTOL-MYERS SQUIBB COMPANY-20352407

PATIENT
  Sex: 0

DRUGS (1)
  1. COUMADIN [Suspect]

REACTIONS (2)
  - Subdural haematoma [Unknown]
  - Fall [Unknown]
